FAERS Safety Report 18846205 (Version 1)
Quarter: 2021Q1

REPORT INFORMATION
  Report Type: Spontaneous
  Country: GB (occurrence: GB)
  Receive Date: 20210204
  Receipt Date: 20210204
  Transmission Date: 20210419
  Serious: Yes (Other)
  Sender: FDA-Public Use
  Company Number: GB-LUPIN PHARMACEUTICALS INC.-2021-00959

PATIENT
  Sex: Male

DRUGS (3)
  1. SPECTINOMYCIN. [Suspect]
     Active Substance: SPECTINOMYCIN
     Indication: GONOCOCCAL INFECTION
     Dosage: 2 GRAM, SINGLE
     Route: 030
     Dates: start: 2018, end: 2018
  2. CEFTRIAXONE. [Suspect]
     Active Substance: CEFTRIAXONE
     Indication: GONOCOCCAL INFECTION
     Dosage: 1 GRAM, SINGLE
     Route: 030
     Dates: start: 2018, end: 2018
  3. DOXYCYCLINE. [Suspect]
     Active Substance: DOXYCYCLINE
     Indication: GONOCOCCAL INFECTION
     Dosage: 100 MILLIGRAM, BID
     Route: 048
     Dates: start: 2018, end: 2018

REACTIONS (1)
  - Treatment failure [Unknown]

NARRATIVE: CASE EVENT DATE: 2018
